FAERS Safety Report 11015322 (Version 2)
Quarter: 2015Q2

REPORT INFORMATION
  Report Type: Spontaneous
  Country: US (occurrence: US)
  Receive Date: 20150412
  Receipt Date: 20150526
  Transmission Date: 20150821
  Serious: No
  Sender: FDA-Public Use
  Company Number: US-JNJFOC-20141206434

PATIENT
  Age: 35 Year
  Sex: Male
  Weight: 74.84 kg

DRUGS (1)
  1. SIMPONI [Suspect]
     Active Substance: GOLIMUMAB
     Indication: ANKYLOSING SPONDYLITIS
     Route: 058
     Dates: start: 201409, end: 20141126

REACTIONS (9)
  - Somnolence [Recovered/Resolved]
  - Negative thoughts [Recovered/Resolved]
  - Temperature intolerance [Not Recovered/Not Resolved]
  - Language disorder [Recovered/Resolved]
  - Malaise [Recovered/Resolved]
  - Memory impairment [Recovered/Resolved]
  - Daydreaming [Recovered/Resolved]
  - Paraesthesia [Not Recovered/Not Resolved]
  - Fatigue [Recovered/Resolved]

NARRATIVE: CASE EVENT DATE: 201409
